FAERS Safety Report 18151076 (Version 2)
Quarter: 2020Q3

REPORT INFORMATION
  Report Type: Spontaneous
  Country: US (occurrence: US)
  Receive Date: 20200814
  Receipt Date: 20200921
  Transmission Date: 20201103
  Serious: No
  Sender: FDA-Public Use
  Company Number: US-PFIZER INC-2020310480

PATIENT
  Age: 42 Year
  Sex: Female

DRUGS (2)
  1. XELJANZ [Suspect]
     Active Substance: TOFACITINIB CITRATE
     Dosage: 5 MG
     Dates: start: 2020
  2. XELJANZ [Suspect]
     Active Substance: TOFACITINIB CITRATE
     Indication: COLITIS ULCERATIVE
     Dosage: 10 MG, 2X/DAY
     Route: 048
     Dates: start: 20200627, end: 2020

REACTIONS (7)
  - Product dose omission in error [Unknown]
  - Tremor [Unknown]
  - Pain [Unknown]
  - Hyperhidrosis [Recovering/Resolving]
  - Depressed mood [Unknown]
  - Condition aggravated [Recovering/Resolving]
  - Paraesthesia [Recovered/Resolved]

NARRATIVE: CASE EVENT DATE: 2020
